FAERS Safety Report 5612035-1 (Version None)
Quarter: 2008Q1

REPORT INFORMATION
  Report Type: 
  Country: None (occurrence: None)
  Receive Date: 20080204
  Receipt Date: 20080124
  Transmission Date: 20080703
  Serious: Yes (Other)
  Sender: FDA-Public Use
  Company Number: US-ROCHE-533396

PATIENT
  Age: 18 Year
  Sex: Male
  Weight: 93 kg

DRUGS (12)
  1. ACCUTANE [Suspect]
     Indication: DRUG USE FOR UNKNOWN INDICATION
     Route: 065
     Dates: start: 19930101, end: 19930521
  2. ACCUTANE [Suspect]
     Route: 065
     Dates: start: 19940309, end: 19940802
  3. ACCUTANE [Suspect]
     Route: 065
     Dates: start: 19940906, end: 19941004
  4. ACCUTANE [Suspect]
     Route: 065
     Dates: start: 19950718, end: 19960102
  5. ACCUTANE [Suspect]
     Route: 065
     Dates: start: 19960422, end: 19961116
  6. ACCUTANE [Suspect]
     Route: 065
     Dates: start: 19980522, end: 19981027
  7. ACCUTANE [Suspect]
     Route: 065
     Dates: start: 19990812, end: 20000803
  8. ACCUTANE [Suspect]
     Route: 065
     Dates: start: 20030301, end: 20030719
  9. ACCUTANE [Suspect]
     Route: 065
     Dates: start: 20031231, end: 20040225
  10. CELEXA [Concomitant]
     Indication: DEPRESSION
     Dosage: REPORTED AS ONCE DAILY
  11. LEVAQUIN [Concomitant]
     Indication: COLITIS
     Dosage: REPORTED AS NEEDED
  12. ASACOL [Concomitant]
     Indication: COLITIS
     Dosage: REPORTED AS TWO TIMES DAILY

REACTIONS (15)
  - ARTHRALGIA [None]
  - BLOOD CHOLESTEROL INCREASED [None]
  - BLOOD TRIGLYCERIDES INCREASED [None]
  - BONE DISORDER [None]
  - COLITIS [None]
  - COLITIS ULCERATIVE [None]
  - DEPRESSION [None]
  - FRACTURE [None]
  - HEPATIC ENZYME INCREASED [None]
  - INFLAMMATORY BOWEL DISEASE [None]
  - IRRITABLE BOWEL SYNDROME [None]
  - OBSESSIVE-COMPULSIVE DISORDER [None]
  - PEPTIC ULCER [None]
  - SLEEP APNOEA SYNDROME [None]
  - TESTICULAR TORSION [None]
